FAERS Safety Report 10262167 (Version 1)
Quarter: 2014Q2

REPORT INFORMATION
  Report Type: Spontaneous
  Country: US (occurrence: US)
  Receive Date: 20140626
  Receipt Date: 20140626
  Transmission Date: 20141212
  Serious: Yes (Hospitalization)
  Sender: FDA-Public Use
  Company Number: US-GLAXOSMITHKLINE-A1078620A

PATIENT
  Age: 82 Year
  Sex: Female

DRUGS (12)
  1. ADVAIR [Suspect]
     Indication: CHRONIC OBSTRUCTIVE PULMONARY DISEASE
     Dosage: 1PUFF TWICE PER DAY
     Route: 055
  2. SPIRIVA [Concomitant]
  3. COMBIVENT [Concomitant]
  4. REGLAN [Concomitant]
  5. GABAPENTIN [Concomitant]
  6. ZOLOFT [Concomitant]
  7. CLARITIN [Concomitant]
  8. XARELTO [Concomitant]
  9. ATORVASTATIN [Concomitant]
  10. NORCO [Concomitant]
  11. OMEPRAZOLE [Concomitant]
  12. SUCRALFATE [Concomitant]

REACTIONS (3)
  - Pneumonia [Recovered/Resolved]
  - Candida infection [Recovered/Resolved]
  - Pelvic fracture [Recovered/Resolved]
